FAERS Safety Report 9651996 (Version 1)
Quarter: 2013Q4

REPORT INFORMATION
  Report Type: Spontaneous
  Country: FR (occurrence: FR)
  Receive Date: 20131029
  Receipt Date: 20131029
  Transmission Date: 20140711
  Serious: Yes (Hospitalization)
  Sender: FDA-Public Use
  Company Number: FR-PFIZER INC-2013301426

PATIENT
  Age: 18 Year
  Sex: Female

DRUGS (3)
  1. ARACYTINE [Suspect]
     Dosage: 1ST COURSE
     Dates: start: 20130712, end: 20130717
  2. ACICLOVIR [Suspect]
     Dosage: UNK
     Dates: start: 20130719, end: 20130730
  3. TIENAM [Concomitant]
     Dosage: UNK
     Dates: start: 20130724, end: 20130726

REACTIONS (3)
  - Erythema [Recovered/Resolved]
  - Pain [Unknown]
  - C-reactive protein increased [Recovering/Resolving]
